FAERS Safety Report 10150635 (Version 2)
Quarter: 2014Q2

REPORT INFORMATION
  Report Type: Spontaneous
  Country: US (occurrence: US)
  Receive Date: 20140502
  Receipt Date: 20140512
  Transmission Date: 20141212
  Serious: No
  Sender: FDA-Public Use
  Company Number: US-PFIZER INC-2014121260

PATIENT
  Age: 64 Year
  Sex: Male

DRUGS (4)
  1. SUTENT [Suspect]
     Indication: RENAL CANCER
     Dosage: 50 MG, CYCLIC DAILY (4 WKS/6WKS)
     Route: 048
     Dates: start: 20140402
  2. SYNTHROID [Concomitant]
     Dosage: UNK
  3. PRILOSEC [Concomitant]
     Dosage: UNK
  4. DOCUSATE [Concomitant]
     Dosage: UNK

REACTIONS (6)
  - Dry skin [Unknown]
  - Acne [Unknown]
  - Oral pain [Unknown]
  - Dry mouth [Unknown]
  - Glossodynia [Unknown]
  - Oral mucosal blistering [Unknown]
